FAERS Safety Report 24924516 (Version 1)
Quarter: 2025Q1

REPORT INFORMATION
  Report Type: Spontaneous
  Country: FR (occurrence: FR)
  Receive Date: 20250204
  Receipt Date: 20250204
  Transmission Date: 20250409
  Serious: No
  Sender: EXELIXIS
  Company Number: FR-BRISTOL-MYERS SQUIBB COMPANY-2024-038467

PATIENT
  Age: 53 Year
  Sex: Male

DRUGS (2)
  1. CABOMETYX [Suspect]
     Active Substance: CABOZANTINIB S-MALATE
     Indication: Renal disorder
  2. OPDIVO [Suspect]
     Active Substance: NIVOLUMAB
     Indication: Renal disorder

REACTIONS (13)
  - Rash maculo-papular [Not Recovered/Not Resolved]
  - Dry skin [Not Recovered/Not Resolved]
  - Stomatitis [Recovered/Resolved]
  - Fatigue [Unknown]
  - Anaemia [Unknown]
  - Pruritus [Unknown]
  - Abdominal pain [Not Recovered/Not Resolved]
  - Nausea [Not Recovered/Not Resolved]
  - Decreased appetite [Not Recovered/Not Resolved]
  - Dyspnoea [Recovered/Resolved]
  - Cough [Recovered/Resolved]
  - Weight decreased [Recovered/Resolved]
  - Headache [Recovered/Resolved]
